FAERS Safety Report 11797495 (Version 1)
Quarter: 2015Q4

REPORT INFORMATION
  Report Type: Report from Study
  Country: FR (occurrence: FR)
  Receive Date: 20151203
  Receipt Date: 20151203
  Transmission Date: 20160305
  Serious: Yes (Other)
  Sender: FDA-Public Use
  Company Number: FR-BAXTER-2015BAX064377

PATIENT

DRUGS (37)
  1. ENDOXAN 1000 MG, POUDRE POUR SOLUTIONINJECTABLE [Suspect]
     Active Substance: CYCLOPHOSPHAMIDE
     Dosage: REINDUCTION PHASE 1 GRAM/M2 ON 29 DAY
     Route: 042
  2. METHOTREXATE [Suspect]
     Active Substance: METHOTREXATE
     Dosage: 3 G/M2 OVER 3 H, INTERPHASE 1 AND 15
     Route: 042
  3. ARACYTINE [Suspect]
     Active Substance: CYTARABINE
     Dosage: PULSE PHASE B 1, 2, 3, 4
     Route: 058
  4. 6-MERCAPTOPURINE [Suspect]
     Active Substance: MERCAPTOPURINE
     Dosage: 1 TO 30 PULSE PHASE B
     Route: 048
  5. METHOTREXATE [Suspect]
     Active Substance: METHOTREXATE
     Dosage: DOSES ADAPTED FOR AGE, CONSOLIDATION THERAPY 2, 16, 31, 46 DAYS
     Route: 037
  6. METHOTREXATE [Suspect]
     Active Substance: METHOTREXATE
     Dosage: DOSES ADAPTED FOR AGE, 1, 29 DAYS
     Route: 037
  7. METHOTREXATE [Suspect]
     Active Substance: METHOTREXATE
     Dosage: PULSE PHASE A WEEKS 2, 3, AND 4
     Route: 048
  8. PREDNISONE. [Suspect]
     Active Substance: PREDNISONE
     Dosage: PULSE PHASE B 1 TO 5
     Route: 048
  9. ECOLI ASPARAGINASE [Suspect]
     Active Substance: ASPARAGINASE
     Dosage: 10,000 U/M?, REINDUCTION PHASE 16, 18, 20; 22, 24, 26 DAYS
     Route: 042
  10. METHOTREXATE [Suspect]
     Active Substance: METHOTREXATE
     Dosage: 3 GRAM/M2 OVER 3 HOURS, INDUCTION PHASE, ON DAY 8
     Route: 042
  11. METHOTREXATE [Suspect]
     Active Substance: METHOTREXATE
     Dosage: 3 G/M?OVER 3 HR, PULSE PHASE A ON DAY 1
     Route: 042
  12. VINCRISTINE [Suspect]
     Active Substance: VINCRISTINE
     Dosage: CONSOLIDATION PHASE, 15, 45 DAYS
     Route: 042
  13. ARACYTINE [Suspect]
     Active Substance: CYTARABINE
     Dosage: REINDUCTION PHASE 29, 30, 31, 32 AND 36, 37, 38, 39 DAYS
     Route: 042
  14. 6-MERCAPTOPURINE [Suspect]
     Active Substance: MERCAPTOPURINE
     Indication: NON-HODGKIN^S LYMPHOMA
     Dosage: INTERPHASE 1 TO 22 DAYS
     Route: 048
  15. METHOTREXATE [Suspect]
     Active Substance: METHOTREXATE
     Dosage: DOSES ADAPTED FOR AGE, 9 AND 15 DAYS
     Route: 037
  16. METHOTREXATE [Suspect]
     Active Substance: METHOTREXATE
     Dosage: DOSES ADAPTED FOR AGE, INTERPHASE 2, 16 DAYS
     Route: 037
  17. METHOTREXATE [Suspect]
     Active Substance: METHOTREXATE
     Dosage: DOSES ADAPTED FOR AGE ON DAY 2, PULSE PHASEA
     Route: 037
  18. METHOTREXATE [Suspect]
     Active Substance: METHOTREXATE
     Dosage: MAINTAINENCE THERAPY ONCE A WEEK
     Route: 048
  19. ECOLI ASPARAGINASE [Suspect]
     Active Substance: ASPARAGINASE
     Dosage: 25,000 U/M2 IV/IM, CONSOLIDATION PHASE 16, 23, 46, 53 DAYS
     Route: 042
  20. ECOLI ASPARAGINASE [Suspect]
     Active Substance: ASPARAGINASE
     Dosage: 25,000 U/M?, PULSE PHASE A ON DAY 2
     Route: 042
  21. ARACYTINE [Suspect]
     Active Substance: CYTARABINE
     Indication: NON-HODGKIN^S LYMPHOMA
     Dosage: CONSOLIDATION PHASE, 2 TO 5; 8 TO 11; 31 TO 34; 38 TO 41
     Route: 042
  22. 6-MERCAPTOPURINE [Suspect]
     Active Substance: MERCAPTOPURINE
     Dosage: MAINTAINENCE THERAPY EVERY DAY
     Route: 048
  23. DOXORUBICIN [Suspect]
     Active Substance: DOXORUBICIN
     Indication: NON-HODGKIN^S LYMPHOMA
     Dosage: REINDUCTION PHASE 1, 8, 15 DAYS
     Route: 042
  24. ENDOXAN 1000 MG, POUDRE POUR SOLUTIONINJECTABLE [Suspect]
     Active Substance: CYCLOPHOSPHAMIDE
     Dosage: 1 GRAM/M2, 1 AND 30 DAY, CONSOLIDATION PHASE
     Route: 042
  25. PREDNISONE. [Suspect]
     Active Substance: PREDNISONE
     Indication: NON-HODGKIN^S LYMPHOMA
     Dosage: 8 TO 28 DAYS, INDUCTION PHASE
     Route: 042
  26. DAUNORUBICIN [Suspect]
     Active Substance: DAUNORUBICIN
     Indication: NON-HODGKIN^S LYMPHOMA
     Dosage: INDUCTION PHASE, 15,22,29
     Route: 042
  27. METHOTREXATE [Suspect]
     Active Substance: METHOTREXATE
     Indication: NON-HODGKIN^S LYMPHOMA
     Dosage: DOSES ADAPTED FOR AGE, 2 OR 3, PREPHASE
     Route: 037
  28. METHOTREXATE [Suspect]
     Active Substance: METHOTREXATE
     Dosage: 3 G/M? IV OVER 3 HR, CONSOLIDATION PHASE 1, 15, 30, 45 DAYS
     Route: 042
  29. VINCRISTINE [Suspect]
     Active Substance: VINCRISTINE
     Indication: NON-HODGKIN^S LYMPHOMA
     Dosage: 8, 15,22,29 DAYS, INDUCTION PHASE
     Route: 042
  30. ECOLI ASPARAGINASE [Suspect]
     Active Substance: ASPARAGINASE
     Indication: NON-HODGKIN^S LYMPHOMA
     Dosage: 10000 U/M2 ON 16, 18, 20, 23, 25, 27, 30, 32 DAYS
     Route: 042
  31. 6-MERCAPTOPURINE [Suspect]
     Active Substance: MERCAPTOPURINE
     Dosage: PULSE PHASE A 1 TO 30 DAYS
     Route: 048
  32. DEXAMETHASONE. [Suspect]
     Active Substance: DEXAMETHASONE
     Indication: NON-HODGKIN^S LYMPHOMA
     Dosage: REINDUCTION PHASE 1 TO 21 DAYS
     Route: 048
  33. ENDOXAN 1000 MG, POUDRE POUR SOLUTIONINJECTABLE [Suspect]
     Active Substance: CYCLOPHOSPHAMIDE
     Indication: NON-HODGKIN^S LYMPHOMA
     Dosage: 1 GRAM /M2 ON DAY 8, INDUCTION PHASE
     Route: 042
  34. PREDNISOLONE. [Suspect]
     Active Substance: PREDNISOLONE
     Indication: NON-HODGKIN^S LYMPHOMA
     Dosage: 1 TO 7 DAYS, PREPHASE
     Route: 042
  35. METHOTREXATE [Suspect]
     Active Substance: METHOTREXATE
     Dosage: PULSE PHASE B ON WEEKS 2, 3, AND 4
     Route: 048
  36. VINCRISTINE [Suspect]
     Active Substance: VINCRISTINE
     Dosage: REINDUCTION PHASE 1, 8, 15 DAYS
     Route: 042
  37. VINCRISTINE [Suspect]
     Active Substance: VINCRISTINE
     Dosage: PULSE PHASE A ON DAY 1
     Route: 042

REACTIONS (2)
  - Therapy responder [Unknown]
  - Neutropenia [Unknown]
